FAERS Safety Report 7691008-1 (Version None)
Quarter: 2011Q3

REPORT INFORMATION
  Report Type: 
  Country: None (occurrence: None)
  Receive Date: 20110818
  Receipt Date: 20110817
  Transmission Date: 20111222
  Serious: Yes (Other)
  Sender: FDA-Public Use
  Company Number: JP-PFIZER INC-2011181740

PATIENT
  Age: 74 Year
  Sex: Male

DRUGS (10)
  1. METHYCOBAL [Concomitant]
     Dosage: 500 MG DAILY
  2. CYTOTEC [Concomitant]
     Dosage: 200 MICROG DAILY
  3. PLAVIX [Concomitant]
     Dosage: 75 MG DAILY
  4. AMLODIPINE [Concomitant]
     Dosage: 5 MG DAILY
  5. SIGMART [Concomitant]
     Dosage: 5 MG DAILY
  6. CARVEDILOL [Concomitant]
     Dosage: 10 MG DAILY
  7. VOLTAREN [Concomitant]
     Dosage: 25 MG DAILY
  8. LYRICA [Suspect]
     Indication: LUMBAR SPINAL STENOSIS
     Dosage: 150 MG DAILY
     Route: 048
  9. ASPIRIN [Concomitant]
     Dosage: 100 MG DAILY
  10. LANSOPRAZOLE [Concomitant]
     Dosage: 15 MG DAILY

REACTIONS (2)
  - FALL [None]
  - ALTERED STATE OF CONSCIOUSNESS [None]
